FAERS Safety Report 8966037 (Version 1)
Quarter: 2012Q4

REPORT INFORMATION
  Report Type: 
  Country: ZA (occurrence: ZA)
  Receive Date: 20121217
  Receipt Date: 20121217
  Transmission Date: 20130627
  Serious: Yes (Hospitalization)
  Sender: FDA-Public Use
  Company Number: ZA-SANOFI-AVENTIS-2012SA090113

PATIENT
  Age: 49 Year
  Sex: Male
  Weight: 81.6 kg

DRUGS (9)
  1. CLOPIDOGREL BISULFATE [Suspect]
     Indication: DRUG USE FOR UNKNOWN INDICATION
     Route: 065
     Dates: start: 20090827
  2. ASPIRIN [Suspect]
     Indication: DRUG USE FOR UNKNOWN INDICATION
     Route: 065
     Dates: start: 20090825
  3. METFORMIN [Concomitant]
     Dates: start: 2007
  4. SIMVASTATIN [Concomitant]
     Dates: start: 20090828
  5. ENALAPRIL/HYDROCHLOROTHIAZIDE [Concomitant]
     Dosage: dose: 20/12.5 mg
     Dates: start: 2007
  6. FISH OIL [Concomitant]
     Dates: start: 200908
  7. FLUOXETINE [Concomitant]
     Dates: start: 200908
  8. AMLODIPINE [Concomitant]
     Dates: start: 200908
  9. BLINDED THERAPY [Concomitant]
     Route: 048
     Dates: start: 20091008

REACTIONS (1)
  - Oesophagitis [Recovering/Resolving]
